FAERS Safety Report 5382394-6 (Version None)
Quarter: 2007Q3

REPORT INFORMATION
  Report Type: 
  Country: None (occurrence: None)
  Receive Date: 20070709
  Receipt Date: 20070625
  Transmission Date: 20080115
  Serious: Yes (Other)
  Sender: FDA-Public Use
  Company Number: US-SHR-US-2007-017352

PATIENT
  Age: 55 Year
  Sex: Female
  Weight: 61.224 kg

DRUGS (19)
  1. BETASERON [Suspect]
     Indication: RELAPSING-REMITTING MULTIPLE SCLEROSIS
     Dosage: 8 MIU, EVERY 2D
     Route: 058
     Dates: start: 19940809
  2. ALLEGRA [Concomitant]
     Indication: MULTIPLE ALLERGIES
     Dosage: 60 MG, 2X/DAY
  3. DITROPAN XL [Concomitant]
     Dosage: 10 MG, 1X/DAY
  4. PATANOL [Concomitant]
     Indication: MULTIPLE ALLERGIES
     Dosage: 1 DROP EACH EYE, 1X/DAY
     Route: 047
  5. FERGON [Concomitant]
     Dosage: 27 MG, 1X/DAY
  6. RHINOCORT [Concomitant]
     Indication: MULTIPLE ALLERGIES
     Dosage: 2 SPRAY EACH NOSTRIL, DAILY
     Route: 045
  7. NEXIUM [Concomitant]
     Dosage: 40 MG, 1X/DAY
  8. EVISTA [Concomitant]
     Dosage: 60 MG, 1X/DAY
  9. ACTOS [Concomitant]
     Dosage: 45 MG, 1X/DAY
  10. ALTACE [Concomitant]
     Dosage: 10 MG, 1X/DAY
  11. OMEGA 3 [Concomitant]
  12. ULTRAM [Concomitant]
     Indication: PAIN
     Dosage: 200 MG, 1X/DAY
  13. TYLENOL [Concomitant]
     Indication: HEADACHE
     Dosage: 1000 MG BEFORE EACH INJ
  14. OMACOR [Concomitant]
     Dosage: 2 CAPSULES, 2X/DAY
  15. THIAMINE HCL [Concomitant]
     Indication: PROPHYLAXIS
     Dosage: 100 MG, 1X/DAY
  16. VITAMIN E [Concomitant]
     Dosage: 400 IU, 1X/DAY
  17. VIACTIV                                 /USA/ [Concomitant]
     Indication: SUPPLEMENTATION THERAPY
     Dosage: 500 MG, UNK
  18. VITAMIN D [Concomitant]
     Indication: SUPPLEMENTATION THERAPY
  19. VITAMIN K [Concomitant]
     Indication: SUPPLEMENTATION THERAPY

REACTIONS (3)
  - MULTIPLE SCLEROSIS [None]
  - RETINAL DISORDER [None]
  - VISUAL DISTURBANCE [None]
